FAERS Safety Report 14150103 (Version 2)
Quarter: 2017Q4

REPORT INFORMATION
  Report Type: Spontaneous
  Country: US (occurrence: US)
  Receive Date: 20171101
  Receipt Date: 20171215
  Transmission Date: 20180321
  Serious: No
  Sender: FDA-Public Use
  Company Number: US-GLAXOSMITHKLINE-US2017166680

PATIENT
  Age: 68 Year
  Sex: Male

DRUGS (15)
  1. LORTAB [Concomitant]
     Active Substance: ACETAMINOPHEN\HYDROCODONE BITARTRATE
  2. METFORMIN [Concomitant]
     Active Substance: METFORMIN HYDROCHLORIDE
  3. ENBREL [Concomitant]
     Active Substance: ETANERCEPT
  4. CARBIDOPA WITH LEVODOPA [Concomitant]
     Active Substance: CARBIDOPA\LEVODOPA
  5. MELATONIN [Concomitant]
     Active Substance: MELATONIN
  6. NEUPRO [Concomitant]
     Active Substance: ROTIGOTINE
  7. VITAMIN D3 [Concomitant]
     Active Substance: CHOLECALCIFEROL
  8. METOPROLOL. [Concomitant]
     Active Substance: METOPROLOL
  9. NAPROXEN. [Concomitant]
     Active Substance: NAPROXEN
  10. PIOGLITAZONE. [Concomitant]
     Active Substance: PIOGLITAZONE
  11. OMEPRAZOLE. [Concomitant]
     Active Substance: OMEPRAZOLE
  12. ATORVASTATIN [Concomitant]
     Active Substance: ATORVASTATIN
  13. TANZEUM [Suspect]
     Active Substance: ALBIGLUTIDE
     Indication: TYPE 2 DIABETES MELLITUS
     Dosage: 50 MG, WE
     Route: 058
     Dates: start: 2015
  14. ASPIRIN. [Concomitant]
     Active Substance: ASPIRIN
  15. FLUOXETINE [Concomitant]
     Active Substance: FLUOXETINE HYDROCHLORIDE

REACTIONS (4)
  - Rhinorrhoea [Recovering/Resolving]
  - Device leakage [Unknown]
  - Product quality issue [Unknown]
  - Exposure via skin contact [Unknown]

NARRATIVE: CASE EVENT DATE: 2017
